FAERS Safety Report 10015735 (Version 2)
Quarter: 2014Q1

REPORT INFORMATION
  Report Type: Report from Study
  Country: JP (occurrence: JP)
  Receive Date: 20140317
  Receipt Date: 20140317
  Transmission Date: 20141002
  Serious: No
  Sender: FDA-Public Use
  Company Number: JP-UCBSA-113183

PATIENT
  Age: 55 Year
  Sex: Female
  Weight: 52.2 kg

DRUGS (4)
  1. LACOSAMIDE [Suspect]
     Indication: PARTIAL SEIZURES
     Dosage: 200 MG OR 400 MG/DAY, DIVIDED DOSE; MORNING AND EVENING DOSE
     Route: 048
     Dates: start: 20131115
  2. E KEPPRA [Concomitant]
     Indication: EPILEPSY
     Route: 048
     Dates: start: 20110617
  3. MYSTAN [Concomitant]
     Indication: EPILEPSY
     Route: 048
     Dates: start: 20130712
  4. MAGNESIUM OXIDE [Concomitant]
     Indication: CONSTIPATION
     Route: 048
     Dates: start: 20131213

REACTIONS (1)
  - Bradycardia [Not Recovered/Not Resolved]
